FAERS Safety Report 24166563 (Version 1)
Quarter: 2024Q3

REPORT INFORMATION
  Report Type: Spontaneous
  Country: CN (occurrence: CN)
  Receive Date: 20240802
  Receipt Date: 20240802
  Transmission Date: 20241017
  Serious: Yes (Hospitalization, Other)
  Sender: RANBAXY
  Company Number: CN-SUN PHARMACEUTICAL INDUSTRIES LTD-2024R1-460071

PATIENT
  Age: 46 Year
  Sex: Male

DRUGS (5)
  1. OXALIPLATIN [Suspect]
     Active Substance: OXALIPLATIN
     Indication: Small intestine carcinoma
     Dosage: UNK (6 CYCLES)
     Route: 065
  2. GIMERACIL [Suspect]
     Active Substance: GIMERACIL
     Indication: Small intestine carcinoma
     Dosage: UNK (6 CYCLES)
     Route: 065
  3. OTERACIL [Suspect]
     Active Substance: OTERACIL
     Indication: Small intestine carcinoma
     Dosage: UNK (6 CYCLES)
     Route: 065
  4. TEGAFUR [Suspect]
     Active Substance: TEGAFUR
     Indication: Small intestine carcinoma
     Dosage: UNK (6 CYCLES)
     Route: 065
  5. POTASSIUM [Concomitant]
     Active Substance: POTASSIUM
     Indication: Small intestine carcinoma
     Dosage: UNK (6 CYCLES)
     Route: 065

REACTIONS (1)
  - Neoplasm progression [Unknown]

NARRATIVE: CASE EVENT DATE: 20211015
